FAERS Safety Report 7427396-0 (Version None)
Quarter: 2011Q2

REPORT INFORMATION
  Report Type: 
  Country: None (occurrence: None)
  Receive Date: 20110420
  Receipt Date: 20110323
  Transmission Date: 20111010
  Serious: No
  Sender: FDA-Public Use
  Company Number: US-B.I. PHARMACEUTICALS,INC./RIDGEFIELD-2011-BP-09004BP

PATIENT
  Sex: Female

DRUGS (7)
  1. LIPITOR [Concomitant]
     Indication: BLOOD CHOLESTEROL INCREASED
  2. AGGRENOX [Suspect]
     Indication: TRANSIENT ISCHAEMIC ATTACK
     Route: 048
     Dates: start: 20110131
  3. ZIAC [Concomitant]
     Indication: HYPERTENSION
  4. MONOPRIL [Concomitant]
     Indication: HYPERTENSION
  5. COUMADIN [Concomitant]
     Indication: THROMBOSIS
  6. XALATAN [Concomitant]
     Indication: GLAUCOMA
  7. VITAMINS [Concomitant]
     Indication: PROPHYLAXIS

REACTIONS (2)
  - PARAESTHESIA [None]
  - INTERNATIONAL NORMALISED RATIO DECREASED [None]
